FAERS Safety Report 4483491-X (Version None)
Quarter: 2004Q4

REPORT INFORMATION
  Report Type: 
  Country: None (occurrence: None)
  Receive Date: 20041020
  Receipt Date: 20041007
  Transmission Date: 20050328
  Serious: Yes (Disabling, Other)
  Sender: FDA-Public Use
  Company Number: 2004048193

PATIENT
  Age: 83 Year
  Sex: Female

DRUGS (4)
  1. ZYRTEC [Suspect]
     Indication: RHINORRHOEA
  2. LORATADINE [Suspect]
     Indication: RHINORRHOEA
  3. FEXOFENADINE HYDROCHLORIDE [Suspect]
     Indication: RHINORRHOEA
  4. ANTIHYPERTENSIVES (ANTIHYPERTENSIVES) [Concomitant]

REACTIONS (2)
  - CEREBROVASCULAR ACCIDENT [None]
  - DRUG INEFFECTIVE [None]
